FAERS Safety Report 4334715-0 (Version None)
Quarter: 2004Q2

REPORT INFORMATION
  Report Type: 
  Country: None (occurrence: None)
  Receive Date: 20040405
  Receipt Date: 20040323
  Transmission Date: 20050107
  Serious: Yes (Other)
  Sender: FDA-Public Use
  Company Number: US-JNJFOC-20040305622

PATIENT
  Age: 68 Year
  Sex: Female
  Weight: 86.1834 kg

DRUGS (14)
  1. REMICADE [Suspect]
     Indication: RHEUMATOID ARTHRITIS
     Dosage: INTRAVENOUS
     Route: 042
     Dates: start: 20040217
  2. METHOTREXATE [Concomitant]
  3. AMBIEN [Concomitant]
  4. TARKA (UDRAMIL) [Concomitant]
  5. HYDROCHLOROTHIAZIDE [Concomitant]
  6. NEXIUM [Concomitant]
  7. ASPIRIN TAB [Concomitant]
  8. ALEGRA (FEXOFENADINE HYDROCHLORIDE) [Concomitant]
  9. FLEXORIL (CYCLOBENZAPRINE HYDROCHLORIDE) [Concomitant]
  10. FOLIC ACID [Concomitant]
  11. CELEXA [Concomitant]
  12. CRESTOR (ALL OTHER THERAPEUTIC PRODUCTS) [Concomitant]
  13. CLARITON (LORATADINE) [Concomitant]
  14. PREDNISONE [Concomitant]

REACTIONS (5)
  - BLOOD CHOLESTEROL INCREASED [None]
  - BLOOD TRIGLYCERIDES INCREASED [None]
  - CAROTID ARTERY STENOSIS [None]
  - LOW DENSITY LIPOPROTEIN INCREASED [None]
  - TRANSIENT ISCHAEMIC ATTACK [None]
